FAERS Safety Report 17584943 (Version 2)
Quarter: 2020Q2

REPORT INFORMATION
  Report Type: Spontaneous
  Country: US (occurrence: US)
  Receive Date: 20200326
  Receipt Date: 20200611
  Transmission Date: 20200713
  Serious: No
  Sender: FDA-Public Use
  Company Number: US-ELI_LILLY_AND_COMPANY-US202003007561

PATIENT
  Sex: Female
  Weight: 51.7 kg

DRUGS (6)
  1. PROGESTERONE. [Concomitant]
     Active Substance: PROGESTERONE
  2. REYVOW [Suspect]
     Active Substance: LASMIDITAN
     Indication: MIGRAINE
     Dosage: 100 MG, SINGLE
     Route: 048
  3. SINGULAIR [Concomitant]
     Active Substance: MONTELUKAST SODIUM
  4. ESTRADIOL. [Concomitant]
     Active Substance: ESTRADIOL
  5. EMGALITY [Suspect]
     Active Substance: GALCANEZUMAB-GNLM
     Indication: MIGRAINE
     Dosage: LOADING DOSE
     Route: 065
     Dates: start: 202002
  6. BACLOFEN. [Concomitant]
     Active Substance: BACLOFEN

REACTIONS (7)
  - Migraine [Recovered/Resolved]
  - Hypoaesthesia [Recovered/Resolved]
  - Feeling abnormal [Recovered/Resolved]
  - Dysarthria [Recovered/Resolved]
  - Somnolence [Recovered/Resolved]
  - Euphoric mood [Recovered/Resolved]
  - Dizziness [Recovered/Resolved]
